FAERS Safety Report 15448598 (Version 1)
Quarter: 2018Q3

REPORT INFORMATION
  Report Type: Spontaneous
  Country: US (occurrence: US)
  Receive Date: 20180929
  Receipt Date: 20180929
  Transmission Date: 20181010
  Serious: No
  Sender: FDA-Public Use
  Company Number: US-TEVA-2018-US-958515

PATIENT
  Sex: Female

DRUGS (3)
  1. LORAZEPAM. [Suspect]
     Active Substance: LORAZEPAM
     Indication: MYALGIA
  2. LORAZEPAM. [Suspect]
     Active Substance: LORAZEPAM
     Indication: ANXIETY
     Route: 065
     Dates: start: 2014
  3. LORAZEPAM. [Suspect]
     Active Substance: LORAZEPAM
     Indication: MUSCULAR WEAKNESS

REACTIONS (2)
  - Nausea [Unknown]
  - Drug screen negative [Unknown]

NARRATIVE: CASE EVENT DATE: 20180917
